FAERS Safety Report 4370724-3 (Version None)
Quarter: 2004Q2

REPORT INFORMATION
  Report Type: 
  Country: None (occurrence: None)
  Receive Date: 20040602
  Receipt Date: 20040602
  Transmission Date: 20050107
  Serious: Yes (Life-Threatening)
  Sender: FDA-Public Use
  Company Number: None

PATIENT
  Sex: Male

DRUGS (8)
  1. CLOZAPINE [Suspect]
     Indication: PSYCHOTIC DISORDER
     Dosage: 600 MG DAILY ORAL
     Route: 048
  2. HALOPERIDOL [Concomitant]
  3. METOPROLOL TARTRATE [Concomitant]
  4. DOXAZOSIN [Concomitant]
  5. DILTIAZEM [Concomitant]
  6. AMANTADINE HCL [Concomitant]
  7. SELENIUM TRACE METAL ADDITIVE [Concomitant]
  8. PSYLLIUM [Concomitant]

REACTIONS (3)
  - CARDIAC DISORDER [None]
  - CARDIOMYOPATHY [None]
  - DYSKINESIA [None]
